FAERS Safety Report 9577503 (Version 1)
Quarter: 2013Q4

REPORT INFORMATION
  Report Type: Spontaneous
  Country: US (occurrence: US)
  Receive Date: 20131001
  Receipt Date: 20131001
  Transmission Date: 20140711
  Serious: No
  Sender: FDA-Public Use
  Company Number: US-AMGEN-USASP2013007832

PATIENT
  Age: 51 Year
  Sex: Female
  Weight: 81.63 kg

DRUGS (5)
  1. ENBREL [Suspect]
     Indication: RHEUMATOID ARTHRITIS
     Dosage: 50 MG, QWK
     Route: 058
  2. NAPROSYN                           /00256201/ [Concomitant]
     Dosage: 250 MG, UNK
     Route: 048
  3. TYLENOL W/CODEINE [Concomitant]
     Dosage: UNK,  #3
     Route: 048
  4. COQ10                              /00517201/ [Concomitant]
     Dosage: 50 MG, UNK
     Route: 048
  5. TURMERIC                           /01079602/ [Concomitant]
     Dosage: 450 MG, UNK
     Route: 048

REACTIONS (1)
  - Injection site reaction [Unknown]
